FAERS Safety Report 8912051 (Version 1)
Quarter: 2012Q4

REPORT INFORMATION
  Report Type: 
  Country: US (occurrence: US)
  Receive Date: 20121116
  Receipt Date: 20121116
  Transmission Date: 20130627
  Serious: No
  Sender: FDA-Public Use
  Company Number: US-PFIZER INC-2012286207

PATIENT
  Age: 65 Year
  Sex: Female
  Weight: 94.33 kg

DRUGS (4)
  1. EFFEXOR XR [Suspect]
     Indication: BREAST CANCER
     Dosage: 75 mg, 1x/day
     Route: 048
     Dates: start: 201210, end: 2012
  2. DICLOFENAC [Concomitant]
     Dosage: UNK
  3. METFORMIN [Concomitant]
     Dosage: UNK
  4. PROPRANOLOL [Concomitant]
     Dosage: UNK

REACTIONS (2)
  - Off label use [Unknown]
  - Hot flush [Unknown]
